FAERS Safety Report 11361998 (Version 1)
Quarter: 2015Q3

REPORT INFORMATION
  Report Type: Spontaneous
  Country: IT (occurrence: IT)
  Receive Date: 20150810
  Receipt Date: 20150810
  Transmission Date: 20151125
  Serious: Yes (Hospitalization, Other)
  Sender: FDA-Public Use
  Company Number: IT-ASTRAZENECA-2015SE44833

PATIENT
  Age: 28527 Day
  Sex: Female

DRUGS (7)
  1. ESOMEPRAZOLE [Concomitant]
     Active Substance: ESOMEPRAZOLE
     Route: 048
  2. METOPROLOL [Concomitant]
     Active Substance: METOPROLOL
     Route: 048
  3. LASIX [Concomitant]
     Active Substance: FUROSEMIDE
     Route: 048
  4. AMIODAR (AMIODARONE) [Concomitant]
     Route: 048
  5. BRILIQUE [Suspect]
     Active Substance: TICAGRELOR
     Indication: ACUTE MYOCARDIAL INFARCTION
     Route: 048
     Dates: start: 20150213, end: 20150321
  6. KANRENOL (POTASSIUM CANRENOATE) [Concomitant]
     Route: 048
  7. CARDIOASPIRIN (ASA) [Suspect]
     Active Substance: ASPIRIN
     Indication: INFARCTION
     Route: 048
     Dates: start: 20150213, end: 20150321

REACTIONS (3)
  - Subdural haematoma [Recovered/Resolved]
  - Fall [Unknown]
  - Head injury [Unknown]

NARRATIVE: CASE EVENT DATE: 20150322
